FAERS Safety Report 7594680-X (Version None)
Quarter: 2011Q3

REPORT INFORMATION
  Report Type: 
  Country: None (occurrence: None)
  Receive Date: 20110707
  Receipt Date: 20110623
  Transmission Date: 20111222
  Serious: Yes (Hospitalization)
  Sender: FDA-Public Use
  Company Number: CA-JNJFOC-20110611541

PATIENT
  Sex: Female
  Weight: 101 kg

DRUGS (6)
  1. TECTA [Concomitant]
  2. BUPROPION HCL [Concomitant]
  3. TRAMADOL HCL [Concomitant]
  4. METOCLOPRAMIDE [Concomitant]
     Dosage: 10 MG BEFORE MEALS AND AT BEDTIME
  5. PENTASA [Concomitant]
  6. REMICADE [Suspect]
     Indication: CROHN'S DISEASE
     Route: 042
     Dates: start: 20090601

REACTIONS (3)
  - DYSPNOEA [None]
  - ABDOMINAL PAIN UPPER [None]
  - ARTHRITIS [None]
